FAERS Safety Report 5197388-3 (Version None)
Quarter: 2006Q4

REPORT INFORMATION
  Report Type: 
  Country: None (occurrence: None)
  Receive Date: 20060928
  Receipt Date: 20060628
  Transmission Date: 20070319
  Serious: Yes (Hospitalization, Other)
  Sender: FDA-Public Use
  Company Number: 2006050027

PATIENT
  Age: 16 Year
  Sex: Male

DRUGS (5)
  1. FELBATOL [Suspect]
     Indication: EPILEPSY
     Dosage: 800 MG VIA J-TUBE (3 IN 1 D)
  2. PREVACID [Concomitant]
  3. BACLOFEN [Concomitant]
  4. PHENOBARBITAL TAB [Concomitant]
  5. ROBINAL [Concomitant]

REACTIONS (2)
  - BLOOD SODIUM DECREASED [None]
  - VOMITING [None]
